FAERS Safety Report 21664464 (Version 1)
Quarter: 2022Q4

REPORT INFORMATION
  Report Type: Report from Study
  Country: CA (occurrence: CA)
  Receive Date: 20221130
  Receipt Date: 20221130
  Transmission Date: 20230113
  Serious: Yes (Other)
  Sender: FDA-Public Use
  Company Number: CA-ABBVIE-4215264

PATIENT
  Age: 49 Year
  Sex: Male

DRUGS (1)
  1. HUMIRA [Suspect]
     Active Substance: ADALIMUMAB
     Indication: Ankylosing spondylitis
     Route: 058
     Dates: start: 20090318, end: 202210

REACTIONS (8)
  - Renal failure [Not Recovered/Not Resolved]
  - Lung disorder [Unknown]
  - Influenza [Unknown]
  - Illness [Unknown]
  - Cardiac failure congestive [Not Recovered/Not Resolved]
  - Hepatic failure [Not Recovered/Not Resolved]
  - COVID-19 [Unknown]
  - Cognitive disorder [Unknown]

NARRATIVE: CASE EVENT DATE: 20221001
